FAERS Safety Report 8181200-4 (Version None)
Quarter: 2012Q1

REPORT INFORMATION
  Report Type: 
  Country: None (occurrence: None)
  Receive Date: 20120302
  Receipt Date: 20120223
  Transmission Date: 20120608
  Serious: Yes (Death)
  Sender: FDA-Public Use
  Company Number: JP-GLAXOSMITHKLINE-B0781416A

PATIENT
  Sex: Female
  Weight: 59 kg

DRUGS (4)
  1. RAMELTEON [Concomitant]
     Indication: PROPHYLAXIS OF NAUSEA AND VOMITING
     Dosage: .3MG PER DAY
     Route: 042
     Dates: start: 20120116, end: 20120120
  2. BLOOD TRANSFUSION [Concomitant]
     Route: 065
     Dates: start: 20120123, end: 20120202
  3. HYCAMTIN [Suspect]
     Indication: OVARIAN CANCER
     Dosage: 1.25MGM2 PER DAY
     Route: 042
     Dates: start: 20120116, end: 20120120
  4. DEXAMETHASONE SODIUM PHOSPHATE [Concomitant]
     Indication: PROPHYLAXIS OF NAUSEA AND VOMITING
     Dosage: 6.6MG PER DAY
     Route: 065
     Dates: start: 20120116, end: 20120120

REACTIONS (2)
  - OVARIAN CANCER [None]
  - DISSEMINATED INTRAVASCULAR COAGULATION [None]
